FAERS Safety Report 6081088-1 (Version None)
Quarter: 2009Q1

REPORT INFORMATION
  Report Type: 
  Country: None (occurrence: None)
  Receive Date: 20090114
  Receipt Date: 20071204
  Transmission Date: 20090719
  Serious: Yes (Life-Threatening)
  Sender: FDA-Public Use
  Company Number: 269092

PATIENT
  Age: 77 Year
  Sex: Male

DRUGS (1)
  1. NOVOLIN 70/30 [Suspect]
     Indication: INSULIN-REQUIRING TYPE 2 DIABETES MELLITUS
     Dosage: 35 IU QAM, 25 IU QPM, SUBCUTANEOUS
     Route: 058

REACTIONS (1)
  - HYPOGLYCAEMIC UNCONSCIOUSNESS [None]
